FAERS Safety Report 4551841-1 (Version None)
Quarter: 2005Q1

REPORT INFORMATION
  Report Type: 
  Country: None (occurrence: None)
  Receive Date: 20050111
  Receipt Date: 20041229
  Transmission Date: 20050727
  Serious: Yes (Other)
  Sender: FDA-Public Use
  Company Number: 2004121967

PATIENT
  Age: 37 Year
  Sex: Female

DRUGS (9)
  1. QUINAPRIL HCL [Suspect]
     Indication: ILL-DEFINED DISORDER
     Dosage: 10 MG (1 IN 1 D) ORAL
     Route: 048
     Dates: start: 20041124, end: 20041207
  2. OMEPRAZOLE [Suspect]
     Indication: GLOMERULONEPHRITIS PROLIFERATIVE
     Dosage: 20 MG(1 IN 1 D), ORAL
     Route: 048
     Dates: start: 20041125, end: 20041206
  3. PREDNISOLONE [Concomitant]
  4. LEVOFLOXACIN [Concomitant]
  5. FAMOTIDINE [Concomitant]
  6. METHYLPREDNISOLONE [Suspect]
     Indication: ILL-DEFINED DISORDER
     Dosage: 500 MG (1 IN 1 D) INTRAVENOUS
     Route: 042
     Dates: start: 20041105, end: 20041127
  7. DILAZEP DIHYDROCHLORIDE (DILAZEP DIHYDROCHLORIDE) [Suspect]
     Indication: ILL-DEFINED DISORDER
     Dosage: 300 MG (1 IN 1 D) ORAL
     Route: 048
     Dates: start: 20041124, end: 20041207
  8. MAGNESIUM OXIDE (MAGNESIUM OXIDE) [Suspect]
     Indication: ILL-DEFINED DISORDER
     Dosage: 0.99 (1 IN 1 D) ORAL
     Route: 048
     Dates: start: 20041124, end: 20041207
  9. HEPARIN CALCIUM [Suspect]
     Indication: ILL-DEFINED DISORDER
     Dosage: 8000 IU (1 IN 1D) INTRAVENOUS
     Route: 042
     Dates: start: 20041126, end: 20041206

REACTIONS (4)
  - ALANINE AMINOTRANSFERASE INCREASED [None]
  - ASPARTATE AMINOTRANSFERASE INCREASED [None]
  - ECZEMA [None]
  - LIVER DISORDER [None]
